FAERS Safety Report 17303470 (Version 3)
Quarter: 2020Q3

REPORT INFORMATION
  Report Type: Report from Study
  Country: TH (occurrence: TH)
  Receive Date: 20200122
  Receipt Date: 20200213
  Transmission Date: 20201105
  Serious: Yes (Hospitalization)
  Sender: FDA-Public Use
  Company Number: TH-ALEXION PHARMACEUTICALS INC.-A202000464

PATIENT
  Age: 40 Year
  Sex: Female
  Weight: 63 kg

DRUGS (7)
  1. FOLIC ACID. [Concomitant]
     Active Substance: FOLIC ACID
     Indication: ANAEMIA
     Dosage: 5 MG, QD
     Route: 048
     Dates: start: 20140924
  2. RAVULIZUMAB. [Suspect]
     Active Substance: RAVULIZUMAB
     Dosage: 3300 MG, UNK
     Route: 042
     Dates: start: 20191107
  3. RAVULIZUMAB. [Suspect]
     Active Substance: RAVULIZUMAB
     Indication: PAROXYSMAL NOCTURNAL HAEMOGLOBINURIA
     Dosage: UNK
     Route: 065
     Dates: start: 20171221
  4. RAVULIZUMAB. [Suspect]
     Active Substance: RAVULIZUMAB
     Dosage: 3300 MG, UNK
     Route: 042
     Dates: start: 20190107
  5. RAVULIZUMAB. [Suspect]
     Active Substance: RAVULIZUMAB
     Dosage: UNK
     Route: 065
     Dates: start: 20190331
  6. VITAMIN B 1?6?12 [Concomitant]
     Active Substance: CYANOCOBALAMIN\PYRIDOXINE\THIAMINE
     Indication: ANAEMIA
     Dosage: 300 MG, TID
     Route: 048
     Dates: start: 20150720
  7. BETAHISTINE [Concomitant]
     Active Substance: BETAHISTINE
     Indication: HAEMOCHROMATOSIS
     Dosage: 6 MG, TID
     Route: 048
     Dates: start: 20190404, end: 20190407

REACTIONS (1)
  - Haemochromatosis [Unknown]

NARRATIVE: CASE EVENT DATE: 20190404
